FAERS Safety Report 26177749 (Version 1)
Quarter: 2025Q4

REPORT INFORMATION
  Report Type: Spontaneous
  Country: EU (occurrence: EU)
  Receive Date: 20251219
  Receipt Date: 20251219
  Transmission Date: 20260117
  Serious: Yes (Hospitalization, Other)
  Sender: Kenvue
  Company Number: EU-SANDOZ-SDZ2025DE092370

PATIENT

DRUGS (7)
  1. IBUPROFEN [Suspect]
     Active Substance: IBUPROFEN
     Indication: Product used for unknown indication
     Dosage: 1800 MG
     Route: 065
  2. IBUPROFEN [Suspect]
     Active Substance: IBUPROFEN
     Dosage: 600 MG
     Route: 065
  3. METHOTREXATE [Suspect]
     Active Substance: METHOTREXATE
     Indication: Product used for unknown indication
     Dosage: 10 MG
     Route: 065
  4. METHOTREXATE [Suspect]
     Active Substance: METHOTREXATE
     Dosage: 15 MG
     Route: 065
  5. METHOTREXATE [Suspect]
     Active Substance: METHOTREXATE
     Dosage: 7.5 MG
     Route: 065
  6. COSENTYX [Suspect]
     Active Substance: SECUKINUMAB
     Indication: Product used for unknown indication
     Dosage: 300 MG
     Route: 065
  7. STELARA [Suspect]
     Active Substance: USTEKINUMAB
     Indication: Product used for unknown indication
     Dosage: 90 MG
     Route: 065

REACTIONS (4)
  - Shoulder arthroplasty [Unknown]
  - Osteoarthritis [Unknown]
  - Prosthesis implantation [Unknown]
  - Deep vein thrombosis [Unknown]
